FAERS Safety Report 5941783-9 (Version None)
Quarter: 2008Q4

REPORT INFORMATION
  Report Type: 
  Country: None (occurrence: None)
  Receive Date: 20081105
  Receipt Date: 20081029
  Transmission Date: 20090506
  Serious: Yes (Other)
  Sender: FDA-Public Use
  Company Number: PHHY2008BR26670

PATIENT
  Age: 45 Year
  Sex: Male
  Weight: 107 kg

DRUGS (2)
  1. LEPONEX [Suspect]
     Indication: SCHIZOPHRENIA
     Dosage: HALF TABLET IN THE MORNING AND ONE TABLET BEFORE SLEEPING
     Route: 048
     Dates: start: 20060101
  2. LEPONEX [Suspect]
     Dosage: 1 TABLET  QD
     Route: 048

REACTIONS (4)
  - AGGRESSION [None]
  - INAPPROPRIATE SCHEDULE OF DRUG ADMINISTRATION [None]
  - MOOD ALTERED [None]
  - WEIGHT INCREASED [None]
